FAERS Safety Report 10038112 (Version 1)
Quarter: 2014Q1

REPORT INFORMATION
  Report Type: Spontaneous
  Country: US (occurrence: None)
  Receive Date: 20140325
  Receipt Date: 20140325
  Transmission Date: 20141002
  Serious: Yes (Other)
  Sender: FDA-Public Use
  Company Number: None

PATIENT
  Age: 86 Year
  Sex: Female

DRUGS (6)
  1. SPINAL MARCAINE [Suspect]
     Indication: KNEE ARTHROPLASTY
     Route: 037
  2. DEXTROSE [Suspect]
  3. MIDAZOLAM [Concomitant]
  4. FENTANYL [Concomitant]
  5. PROPOFOL [Concomitant]
  6. ROPIVACAINE FEMORAL NEVER BLOCK [Concomitant]

REACTIONS (2)
  - Drug effect delayed [None]
  - Drug effect decreased [None]
